FAERS Safety Report 8999542 (Version 1)
Quarter: 2013Q1

REPORT INFORMATION
  Report Type: Spontaneous
  Country: US (occurrence: US)
  Receive Date: 20130103
  Receipt Date: 20130103
  Transmission Date: 20140127
  Serious: Yes (Hospitalization)
  Sender: FDA-Public Use
  Company Number: US-GILEAD-2012-0067120

PATIENT
  Age: 80 Year
  Sex: Female

DRUGS (2)
  1. LETAIRIS [Suspect]
     Indication: COR PULMONALE CHRONIC
     Dosage: 10 MG, QD
     Route: 048
     Dates: start: 20090629
  2. TYVASO [Suspect]

REACTIONS (5)
  - Cellulitis [Unknown]
  - Wheezing [Unknown]
  - Speech disorder [Unknown]
  - Asthenia [Unknown]
  - Dyspnoea [Unknown]
